FAERS Safety Report 5937545-9 (Version None)
Quarter: 2008Q4

REPORT INFORMATION
  Report Type: 
  Country: None (occurrence: None)
  Receive Date: 20081031
  Receipt Date: 20081022
  Transmission Date: 20090506
  Serious: Yes (Hospitalization)
  Sender: FDA-Public Use
  Company Number: BE-ABBOTT-08P-013-0483770-00

PATIENT
  Sex: Male
  Weight: 121 kg

DRUGS (6)
  1. HUMIRA [Suspect]
     Indication: RHEUMATOID ARTHRITIS
  2. REPAGLINIDE [Concomitant]
     Indication: DIABETES MELLITUS
     Dosage: 1 MG IN MORNING, 0.5MG AT NOON AND IN THE EVENING
  3. METHOTREXATE [Concomitant]
     Indication: RHEUMATOID ARTHRITIS
  4. NAPROXEN [Concomitant]
     Indication: DRUG USE FOR UNKNOWN INDICATION
  5. QUINAPRIL HCL [Concomitant]
     Indication: HYPERTENSION
     Dosage: 20-40 MG
     Dates: start: 20080901
  6. QUINAPRIL HCL [Concomitant]
     Dates: start: 20080901

REACTIONS (7)
  - ASTHENIA [None]
  - ATRIAL FIBRILLATION [None]
  - CARDIAC FAILURE [None]
  - CHEST PAIN [None]
  - DYSPNOEA [None]
  - ORTHOPNOEA [None]
  - PULMONARY OEDEMA [None]
